FAERS Safety Report 14764065 (Version 2)
Quarter: 2018Q2

REPORT INFORMATION
  Report Type: Report from Study
  Country: US (occurrence: US)
  Receive Date: 20180416
  Receipt Date: 20180504
  Transmission Date: 20180711
  Serious: Yes (Hospitalization, Other)
  Sender: FDA-Public Use
  Company Number: US-AMGEN-USASP2018048140

PATIENT
  Age: 74 Year
  Sex: Female

DRUGS (4)
  1. PREDNISONE. [Concomitant]
     Active Substance: PREDNISONE
     Dosage: UNK
  2. REPATHA [Suspect]
     Active Substance: EVOLOCUMAB
     Indication: PRODUCT USED FOR UNKNOWN INDICATION
     Dosage: 140 MG, Q2WK
     Route: 065
     Dates: start: 2017
  3. ESOMEPRAZOLE [Concomitant]
     Active Substance: ESOMEPRAZOLE
     Dosage: UNK
  4. INSULIN [Concomitant]
     Active Substance: INSULIN NOS
     Indication: DIABETES MELLITUS
     Dosage: UNK

REACTIONS (17)
  - Sleep disorder [Unknown]
  - Peripheral swelling [Unknown]
  - Purpura [Unknown]
  - Cough [Unknown]
  - Influenza [Recovered/Resolved]
  - Rash erythematous [Unknown]
  - Psoriasis [Unknown]
  - Sinusitis [Unknown]
  - Oropharyngeal pain [Unknown]
  - Macule [Unknown]
  - Musculoskeletal pain [Unknown]
  - Back pain [Unknown]
  - Exfoliative rash [Unknown]
  - Skin papilloma [Unknown]
  - Weight decreased [Unknown]
  - Contusion [Unknown]
  - Eczema [Unknown]
